FAERS Safety Report 12241606 (Version 1)
Quarter: 2016Q2

REPORT INFORMATION
  Report Type: Spontaneous
  Country: US (occurrence: None)
  Receive Date: 20160405
  Receipt Date: 20160405
  Transmission Date: 20160815
  Serious: No
  Sender: FDA-Public Use
  Company Number: None

PATIENT
  Age: 13 Year
  Sex: Male
  Weight: 56.7 kg

DRUGS (1)
  1. AZITHROMYCIN 250 MG, 250 MG TEVA [Suspect]
     Active Substance: AZITHROMYCIN ANHYDROUS
     Indication: BRONCHITIS
     Dosage: 6 TABLET(S) ONCE A DAY TAKEN BY MOUTH
     Route: 048
     Dates: start: 20160325, end: 20160327

REACTIONS (2)
  - Urticaria [None]
  - Vomiting [None]

NARRATIVE: CASE EVENT DATE: 20160327
